FAERS Safety Report 6062562-0 (Version None)
Quarter: 2009Q1

REPORT INFORMATION
  Report Type: 
  Country: None (occurrence: None)
  Receive Date: 20090203
  Receipt Date: 20090129
  Transmission Date: 20090719
  Serious: Yes (Other)
  Sender: FDA-Public Use
  Company Number: US-ALLERGAN-0816456US

PATIENT
  Sex: Female

DRUGS (9)
  1. COMBIGAN [Suspect]
     Indication: GLAUCOMA
     Dosage: UNK, BID
     Route: 047
     Dates: start: 20081210, end: 20081218
  2. HYZAAR [Concomitant]
     Indication: HYPERTENSION
     Dosage: UNK, UNK
  3. ZOCOR [Concomitant]
     Indication: BLOOD CHOLESTEROL INCREASED
     Dosage: 20 MG, UNK
  4. GLUCOPHAGE [Concomitant]
     Indication: DIABETES MELLITUS
  5. METOPROLOL TARTRATE [Concomitant]
     Indication: HYPERTENSION
     Dosage: 50 MG, QAM
  6. METOPROLOL TARTRATE [Concomitant]
     Dosage: 25 MG, QPM
  7. ACIPHEX [Concomitant]
     Indication: GASTROOESOPHAGEAL REFLUX DISEASE
  8. SYNTHROID [Concomitant]
     Indication: HYPOTHYROIDISM
     Dosage: 100 MG, QD
  9. JANUVIA [Concomitant]
     Indication: DIABETES MELLITUS
     Dosage: 50 MG, QD

REACTIONS (7)
  - BREAST PAIN [None]
  - CHEST DISCOMFORT [None]
  - DRY MOUTH [None]
  - EYE PAIN [None]
  - HEADACHE [None]
  - SOMNOLENCE [None]
  - VISION BLURRED [None]
